FAERS Safety Report 18387010 (Version 2)
Quarter: 2020Q4

REPORT INFORMATION
  Report Type: Spontaneous
  Country: JP (occurrence: JP)
  Receive Date: 20201015
  Receipt Date: 20201020
  Transmission Date: 20210114
  Serious: Yes (Other)
  Sender: FDA-Public Use
  Company Number: JP-PFIZER INC-2020391967

PATIENT
  Age: 70 Year
  Sex: Female

DRUGS (4)
  1. DOCETAXEL. [Suspect]
     Active Substance: DOCETAXEL
     Indication: NASAL SINUS CANCER
     Dosage: 60 MG/M2, CYCLIC ((EVERY 4 WEEKS) AT INFUSION RATE 3.0 ML/MIN)
     Route: 013
  2. NEDAPLATIN [Suspect]
     Active Substance: NEDAPLATIN
     Dosage: 80 MG/M2 (EVERY 4 WEEKS) AT INFUSION RATE 1.5 ML/MIN
  3. NEDAPLATIN [Suspect]
     Active Substance: NEDAPLATIN
     Indication: NASAL SINUS CANCER
     Dosage: 80 MG/M2 (EVERY 4 WEEKS) AT INFUSION RATE 3.0 ML/MIN
  4. DOCETAXEL. [Suspect]
     Active Substance: DOCETAXEL
     Dosage: 60 MG/M2, CYCLIC ((EVERY 4 WEEKS) AT INFUSION RATE 1.5 ML/MIN)
     Route: 013

REACTIONS (2)
  - Headache [Recovered/Resolved]
  - Cerebral haemorrhage [Recovered/Resolved]
